FAERS Safety Report 14109628 (Version 66)
Quarter: 2019Q3

REPORT INFORMATION
  Report Type: Report from Study
  Country: CA (occurrence: CA)
  Receive Date: 20171020
  Receipt Date: 20190905
  Transmission Date: 20191004
  Serious: Yes (Hospitalization, Other)
  Sender: FDA-Public Use
  Company Number: CA-ROCHE-1810878

PATIENT
  Age: 24 Year
  Sex: Female
  Weight: 74.8 kg

DRUGS (14)
  1. ACTEMRA [Suspect]
     Active Substance: TOCILIZUMAB
     Route: 058
     Dates: start: 20190429
  2. ACTEMRA [Suspect]
     Active Substance: TOCILIZUMAB
     Route: 058
     Dates: start: 20170925
  3. ACTEMRA [Suspect]
     Active Substance: TOCILIZUMAB
     Route: 058
     Dates: start: 20180409
  4. ACTEMRA [Suspect]
     Active Substance: TOCILIZUMAB
     Route: 058
     Dates: start: 20171211
  5. ACTEMRA [Suspect]
     Active Substance: TOCILIZUMAB
     Route: 058
     Dates: start: 20190522
  6. ACTEMRA [Suspect]
     Active Substance: TOCILIZUMAB
     Route: 058
     Dates: start: 20171023
  7. ACTEMRA [Suspect]
     Active Substance: TOCILIZUMAB
     Route: 058
     Dates: start: 20170410
  8. ACTEMRA [Suspect]
     Active Substance: TOCILIZUMAB
     Route: 058
     Dates: start: 20180723
  9. ACTEMRA [Suspect]
     Active Substance: TOCILIZUMAB
     Route: 058
     Dates: start: 20180813
  10. FOLIC ACID. [Concomitant]
     Active Substance: FOLIC ACID
  11. ACTEMRA [Suspect]
     Active Substance: TOCILIZUMAB
     Indication: RHEUMATOID ARTHRITIS
     Route: 058
     Dates: start: 201502
  12. ACTEMRA [Suspect]
     Active Substance: TOCILIZUMAB
     Route: 058
     Dates: start: 20190306
  13. ACTEMRA [Suspect]
     Active Substance: TOCILIZUMAB
     Route: 058
     Dates: start: 20190603
  14. METHOTREXATE. [Concomitant]
     Active Substance: METHOTREXATE

REACTIONS (38)
  - Arthralgia [Unknown]
  - Vomiting [Not Recovered/Not Resolved]
  - Ankle deformity [Unknown]
  - Loss of personal independence in daily activities [Unknown]
  - Haemoglobin decreased [Unknown]
  - Mean cell haemoglobin decreased [Unknown]
  - Pharyngitis streptococcal [Recovered/Resolved]
  - Fear of injection [Unknown]
  - Weight increased [Unknown]
  - Pain [Not Recovered/Not Resolved]
  - Blood creatinine decreased [Unknown]
  - Hypoaesthesia [Recovered/Resolved]
  - Nausea [Not Recovered/Not Resolved]
  - Bone density abnormal [Unknown]
  - Hypotension [Unknown]
  - Therapeutic response decreased [Unknown]
  - Arthritis [Recovered/Resolved]
  - Gastric disorder [Not Recovered/Not Resolved]
  - Ear infection [Recovering/Resolving]
  - Malaise [Unknown]
  - Therapeutic product effect decreased [Unknown]
  - Joint range of motion decreased [Not Recovered/Not Resolved]
  - Stress [Unknown]
  - Product dose omission [Unknown]
  - Infection [Recovered/Resolved]
  - Asthenia [Unknown]
  - Rheumatoid factor increased [Unknown]
  - Body temperature decreased [Unknown]
  - Paraesthesia [Recovered/Resolved]
  - Gastrointestinal disorder [Not Recovered/Not Resolved]
  - Gait inability [Not Recovered/Not Resolved]
  - Piriformis syndrome [Not Recovered/Not Resolved]
  - Incorrect dose administered [Unknown]
  - Gait disturbance [Not Recovered/Not Resolved]
  - Inflammation [Unknown]
  - Joint swelling [Recovering/Resolving]
  - Hypersensitivity [Unknown]
  - Allergy to arthropod bite [Not Recovered/Not Resolved]

NARRATIVE: CASE EVENT DATE: 2016
